FAERS Safety Report 7256915-2 (Version None)
Quarter: 2011Q1

REPORT INFORMATION
  Report Type: 
  Country: None (occurrence: None)
  Receive Date: 20110129
  Receipt Date: 20100630
  Transmission Date: 20110831
  Serious: No
  Sender: FDA-Public Use
  Company Number: US-ABBOTT-10P-163-0655301-00

PATIENT
  Sex: Male
  Weight: 79.45 kg

DRUGS (5)
  1. METHOTREXATE [Concomitant]
     Indication: RHEUMATOID ARTHRITIS
  2. HUMIRA [Suspect]
     Indication: RHEUMATOID ARTHRITIS
     Dates: start: 20071107
  3. PLAQUENIL [Concomitant]
     Indication: RHEUMATOID ARTHRITIS
  4. ACTIGALL [Concomitant]
     Indication: CHOLESTASIS
  5. AVODART [Concomitant]
     Indication: PROSTATOMEGALY

REACTIONS (5)
  - CHOLESTASIS [None]
  - JOINT SWELLING [None]
  - ASPARTATE AMINOTRANSFERASE INCREASED [None]
  - ALANINE AMINOTRANSFERASE INCREASED [None]
  - BILE OUTPUT DECREASED [None]
